FAERS Safety Report 4280645-2 (Version None)
Quarter: 2004Q1

REPORT INFORMATION
  Report Type: 
  Country: None (occurrence: None)
  Receive Date: 20040127
  Receipt Date: 20040108
  Transmission Date: 20041129
  Serious: Yes (Other)
  Sender: FDA-Public Use
  Company Number: A-US2003-04101

PATIENT
  Age: 82 Year
  Sex: Male

DRUGS (9)
  1. TRACLEER [Suspect]
     Indication: INTERSTITIAL LUNG DISEASE
     Dosage: SEE IMAGE
     Route: 048
     Dates: start: 20031002, end: 20031101
  2. TRACLEER [Suspect]
     Indication: INTERSTITIAL LUNG DISEASE
     Dosage: SEE IMAGE
     Route: 048
     Dates: start: 20031102, end: 20031204
  3. COUMADIN [Concomitant]
  4. FUROSEMIDE [Concomitant]
  5. DIGOXIN [Concomitant]
  6. LISINOPRIL [Concomitant]
  7. ALPHAGAN [Concomitant]
  8. COMBIVENT [Concomitant]
  9. SEREVENT [Concomitant]

REACTIONS (5)
  - ALANINE AMINOTRANSFERASE INCREASED [None]
  - ASPARTATE AMINOTRANSFERASE INCREASED [None]
  - BLOOD ALKALINE PHOSPHATASE INCREASED [None]
  - BLOOD BILIRUBIN INCREASED [None]
  - LIVER FUNCTION TEST ABNORMAL [None]
